FAERS Safety Report 16090290 (Version 1)
Quarter: 2019Q1

REPORT INFORMATION
  Report Type: Spontaneous
  Country: US (occurrence: US)
  Receive Date: 20190319
  Receipt Date: 20190319
  Transmission Date: 20190418
  Serious: Yes (Hospitalization, Other)
  Sender: FDA-Public Use
  Company Number: US-SA-2019SA070039

PATIENT
  Sex: Female

DRUGS (1)
  1. AUBAGIO [Suspect]
     Active Substance: TERIFLUNOMIDE
     Indication: MULTIPLE SCLEROSIS
     Dosage: UNK
     Dates: start: 201412, end: 201808

REACTIONS (5)
  - Early satiety [Unknown]
  - Abdominal distension [Unknown]
  - Constipation [Unknown]
  - Adenocarcinoma [Unknown]
  - Metastases to peritoneum [Unknown]
